FAERS Safety Report 10369194 (Version 1)
Quarter: 2014Q1

REPORT INFORMATION
  Report Type: Spontaneous
  Country: US (occurrence: None)
  Receive Date: 20140306
  Receipt Date: 20140306
  Transmission Date: 20141002
  Serious: Yes (Hospitalization)
  Sender: FDA-Public Use
  Company Number: 163-21880-13033217

PATIENT
  Age: 72 Year
  Sex: Male
  Weight: 79.38 kg

DRUGS (12)
  1. REVLIMID (LENALIDOMIDE) (CAPSULES) [Suspect]
     Indication: PLASMA CELL MYELOMA
     Route: 048
     Dates: start: 201101, end: 2011
  2. TYLENOL (PARACETAMOL) (UNKOWN) [Concomitant]
  3. FENTANYL (UNKNOWN) [Concomitant]
  4. SIMVASTATIN (UNKNOWN) [Concomitant]
  5. ALLOPURINOL (UNKNOWN) [Concomitant]
  6. VALCYCLOVIR (UNKNOWN) [Concomitant]
  7. GABPENTIN (UNKNOWN) [Concomitant]
  8. ASPIRIN (UNKNOWN) [Concomitant]
  9. DEXAMETHASONE (UNKNOWN) [Concomitant]
  10. VELCADE (BORTEZOMIB) (INJECTION) [Concomitant]
  11. NEXIUM (ESOMEPRAZOLE) (UNKNOWN) [Concomitant]
  12. AMBIEN [Concomitant]

REACTIONS (2)
  - Influenza [None]
  - Pyrexia [None]
